FAERS Safety Report 4289520-0 (Version None)
Quarter: 2004Q1

REPORT INFORMATION
  Report Type: 
  Country: None (occurrence: None)
  Receive Date: 20040126
  Receipt Date: 20031006
  Transmission Date: 20041129
  Serious: No
  Sender: FDA-Public Use
  Company Number: USA030435656

PATIENT
  Age: 78 Year
  Sex: Female
  Weight: 50 kg

DRUGS (18)
  1. FORTEO [Suspect]
     Indication: OSTEOPOROSIS
     Dosage: 20 UG/DAY
     Dates: start: 20030422
  2. ARICEPT [Concomitant]
  3. ASTELIN [Concomitant]
  4. BEXTRA [Concomitant]
  5. CALCITRIOL [Concomitant]
  6. FOSAMAX [Concomitant]
  7. NASOCORT (BUDESONIDE) [Concomitant]
  8. NEXIUM [Concomitant]
  9. NASAL SPRAY [Concomitant]
  10. ASPIRIN [Concomitant]
  11. ZADITOR (KETOTIFEN) [Concomitant]
  12. MELATONIN [Concomitant]
  13. EXTRA STRENGTH TYLENOL [Concomitant]
  14. MULTIVITAMIN [Concomitant]
  15. PREVACID [Concomitant]
  16. CALCIUM [Concomitant]
  17. MAGNESIUM [Concomitant]
  18. PROVIGIL [Concomitant]

REACTIONS (21)
  - ABDOMINAL PAIN UPPER [None]
  - ASTHENIA [None]
  - ASTHENOPIA [None]
  - DIARRHOEA [None]
  - EYE IRRITATION [None]
  - GAIT DISTURBANCE [None]
  - GROIN PAIN [None]
  - ILL-DEFINED DISORDER [None]
  - INJECTION SITE DISCOMFORT [None]
  - INJECTION SITE HAEMORRHAGE [None]
  - INSOMNIA [None]
  - INTERVERTEBRAL DISC SPACE NARROWING [None]
  - MUSCLE CRAMP [None]
  - MUSCLE TIGHTNESS [None]
  - MYALGIA [None]
  - NASAL CONGESTION [None]
  - PAIN IN EXTREMITY [None]
  - PARAESTHESIA [None]
  - RENAL CYST [None]
  - RHINORRHOEA [None]
  - SLEEP DISORDER [None]
